FAERS Safety Report 10083458 (Version 1)
Quarter: 2014Q2

REPORT INFORMATION
  Report Type: Spontaneous
  Country: US (occurrence: None)
  Receive Date: 20140416
  Receipt Date: 20140416
  Transmission Date: 20141212
  Serious: Yes (Disabling)
  Sender: FDA-Public Use
  Company Number: None

PATIENT
  Age: 20 Year
  Sex: Male
  Weight: 72.58 kg

DRUGS (1)
  1. CIPROFLOXACIN [Suspect]
     Indication: PROSTATE INFECTION
     Dosage: 2 PILLS, ONCE DAILY, TAKEN BY MOUTH
     Route: 048
     Dates: start: 20120718

REACTIONS (23)
  - Insomnia [None]
  - Pain [None]
  - Gastrointestinal disorder [None]
  - Cognitive disorder [None]
  - Disturbance in attention [None]
  - Thinking abnormal [None]
  - Aphasia [None]
  - Headache [None]
  - Muscle tightness [None]
  - Dizziness [None]
  - Gait disturbance [None]
  - Irritability [None]
  - Tendonitis [None]
  - Myalgia [None]
  - Hypoglycaemia [None]
  - Feeling abnormal [None]
  - Asthenia [None]
  - Nervousness [None]
  - Nightmare [None]
  - Paraesthesia [None]
  - Heart rate increased [None]
  - Vitreous floaters [None]
  - Depression [None]
